FAERS Safety Report 7012331-X (Version None)
Quarter: 2010Q3

REPORT INFORMATION
  Report Type: 
  Country: None (occurrence: None)
  Receive Date: 20100924
  Receipt Date: 20100915
  Transmission Date: 20110219
  Serious: Yes (Hospitalization, Other)
  Sender: FDA-Public Use
  Company Number: US-JNJFOC-20100905974

PATIENT
  Sex: Female
  Weight: 120.2 kg

DRUGS (6)
  1. DURAGESIC-100 [Suspect]
     Indication: KNEE ARTHROPLASTY
     Route: 062
  2. FENTANYL TRANSDERMAL SYSTEM [Suspect]
     Indication: KNEE ARTHROPLASTY
     Route: 062
  3. DURAGESIC-100 [Suspect]
     Dosage: NDC#50458-092-05
     Route: 062
  4. ALBUTEROL [Concomitant]
     Indication: ASTHMA
     Route: 055
  5. ATROVENT [Concomitant]
     Indication: ASTHMA
     Route: 055
  6. ADVAIR DISKUS 250/50 [Concomitant]
     Indication: ASTHMA
     Route: 055

REACTIONS (19)
  - ABASIA [None]
  - ABNORMAL CLOTTING FACTOR [None]
  - ADRENAL INSUFFICIENCY [None]
  - ASCITES [None]
  - BLOOD POTASSIUM DECREASED [None]
  - FLUID RETENTION [None]
  - HEPATIC FAILURE [None]
  - HOSPITALISATION [None]
  - HYPONATRAEMIA [None]
  - HYPOTENSION [None]
  - HYPOTONIA [None]
  - NAUSEA [None]
  - NEUROENDOCRINE CARCINOMA [None]
  - PANCREATIC INSUFFICIENCY [None]
  - PORTAL HYPERTENSION [None]
  - SOMNOLENCE [None]
  - TYPE 2 DIABETES MELLITUS [None]
  - VITAMIN D DEFICIENCY [None]
  - ZINC DEFICIENCY [None]
